FAERS Safety Report 18756357 (Version 1)
Quarter: 2021Q1

REPORT INFORMATION
  Report Type: Spontaneous
  Country: US (occurrence: US)
  Receive Date: 20210118
  Receipt Date: 20210118
  Transmission Date: 20210419
  Serious: No
  Sender: FDA-Public Use
  Company Number: None

PATIENT
  Sex: Female
  Weight: 65.77 kg

DRUGS (2)
  1. LNTRATHECAL PAIN MEDICATION PUMP [Suspect]
     Active Substance: DEVICE
     Dates: start: 20171023
  2. MORPHINE [Suspect]
     Active Substance: MORPHINE

REACTIONS (2)
  - Hypoaesthesia [None]
  - Granuloma [None]
